FAERS Safety Report 6925968-0 (Version None)
Quarter: 2010Q3

REPORT INFORMATION
  Report Type: 
  Country: None (occurrence: None)
  Receive Date: 20100813
  Receipt Date: 20100813
  Transmission Date: 20110219
  Serious: Yes (Hospitalization)
  Sender: FDA-Public Use
  Company Number: None

PATIENT
  Age: 60 Year
  Sex: Male
  Weight: 107 kg

DRUGS (1)
  1. ENOXAPARIN SODIUM [Suspect]
     Indication: SURGERY
     Dosage: 40 MG EVERY DAY SQ 07/12/2010 MG EVERY DAY SQ
     Route: 058
     Dates: start: 20100712, end: 20100716

REACTIONS (4)
  - CONTUSION [None]
  - HAEMORRHAGE [None]
  - JOINT SWELLING [None]
  - PAIN [None]
